FAERS Safety Report 9325606 (Version 1)
Quarter: 2013Q2

REPORT INFORMATION
  Report Type: Spontaneous
  Country: SE (occurrence: SE)
  Receive Date: 20130604
  Receipt Date: 20130604
  Transmission Date: 20140414
  Serious: Yes (Hospitalization, Other)
  Sender: FDA-Public Use
  Company Number: SE-TEVA-407668ISR

PATIENT
  Age: 67 Year
  Sex: Male

DRUGS (13)
  1. DOXORUBICIN TEVA [Suspect]
     Indication: T-CELL LYMPHOMA
     Route: 065
     Dates: start: 20121026
  2. VINKRISTIN [Suspect]
     Indication: T-CELL LYMPHOMA
     Route: 065
     Dates: start: 20121026
  3. CYKLOFOSFAMID EBB [Suspect]
     Indication: T-CELL LYMPHOMA
     Route: 065
     Dates: start: 20121026
  4. PREDNISOLON PFIZER [Suspect]
     Indication: T-CELL LYMPHOMA
     Route: 065
     Dates: start: 20121026
  5. ALFUZOSIN UNSPECIFIED [Concomitant]
     Route: 065
  6. ACIKLOVIR UNSPECIFIED [Concomitant]
     Route: 065
  7. OMEPRAZOL PFIZER [Concomitant]
     Route: 048
  8. PANODIL [Concomitant]
     Route: 048
  9. KALEROID [Concomitant]
     Route: 048
  10. BACTRIM FORTE [Concomitant]
     Route: 048
  11. FRAGMIN [Concomitant]
     Route: 065
  12. ALLOPURINOL [Concomitant]
     Route: 065
  13. MOVICOL [Concomitant]
     Route: 065

REACTIONS (9)
  - Drug hypersensitivity [Recovered/Resolved]
  - Pyrexia [Recovered/Resolved]
  - Chills [Recovered/Resolved]
  - Malaise [Recovered/Resolved]
  - Respiratory disorder [Recovered/Resolved]
  - Cytokine storm [Unknown]
  - Pulmonary embolism [Unknown]
  - Febrile neutropenia [Unknown]
  - Peripheral nerve paresis [Unknown]
